FAERS Safety Report 5201566-4 (Version None)
Quarter: 2006Q4

REPORT INFORMATION
  Report Type: 
  Country: None (occurrence: None)
  Receive Date: 20061006
  Receipt Date: 20060405
  Transmission Date: 20070319
  Serious: Yes (Other)
  Sender: FDA-Public Use
  Company Number: PHEH2006US04493

PATIENT
  Age: 57 Year
  Sex: Female

DRUGS (2)
  1. ESTALIS COMBIPATCH(ESTRADIOL, NORETHISTERONE ACETATE) TRANS-THERAPEUTI [Suspect]
     Indication: HORMONE REPLACEMENT THERAPY
     Dosage: TRANSDERMAL
     Route: 062
  2. FEMHRT [Suspect]
     Indication: DRUG USE FOR UNKNOWN INDICATION

REACTIONS (3)
  - BIOPSY BREAST ABNORMAL [None]
  - BREAST CANCER [None]
  - MALIGNANT BREAST LUMP REMOVAL [None]
